FAERS Safety Report 8726502 (Version 2)
Quarter: 2013Q4

REPORT INFORMATION
  Report Type: Report from Study
  Country: DE (occurrence: DE)
  Receive Date: 20120816
  Receipt Date: 20131107
  Transmission Date: 20140711
  Serious: Yes (Hospitalization)
  Sender: FDA-Public Use
  Company Number: DE-009507513-2011SP023929

PATIENT
  Age: 53 Year
  Sex: Female
  Weight: 90.4 kg

DRUGS (101)
  1. POSACONAZOLE [Suspect]
     Indication: INFECTION PROPHYLAXIS
     Dosage: 300 MG, BID
     Route: 042
     Dates: start: 20110324, end: 20110324
  2. POSACONAZOLE [Suspect]
     Dosage: 300 MG, QD
     Route: 042
     Dates: start: 20110325, end: 20110406
  3. POSACONAZOLE [Suspect]
     Dosage: 400 MG, BID
     Route: 048
     Dates: start: 20110407, end: 20110420
  4. POSACONAZOLE [Suspect]
     Dosage: UNK
     Route: 048
  5. METOPROLOL SUCCINATE [Concomitant]
     Indication: HYPERTENSION
     Dosage: UNK UNK, QD
     Route: 048
     Dates: start: 20110315
  6. RAMIPRIL [Concomitant]
     Indication: HYPERTENSION
     Dosage: UNK UNK, QD
     Route: 048
     Dates: start: 20110315, end: 20110323
  7. AMLODIPINE [Concomitant]
     Indication: HYPERTENSION
     Dosage: UNK UNK, QD
     Route: 048
     Dates: start: 20110315
  8. PANTOPRAZOLE [Concomitant]
     Indication: GASTRITIS PROPHYLAXIS
     Dosage: UNK UNK, QD
     Route: 048
     Dates: start: 20110315, end: 20110324
  9. PANTOPRAZOLE [Concomitant]
     Dosage: UNK
     Route: 042
     Dates: start: 20110324, end: 20110401
  10. PANTOPRAZOLE [Concomitant]
     Dosage: UNK
     Route: 048
     Dates: start: 20110402
  11. MEDROXYPROGESTERONE ACETATE [Concomitant]
     Indication: HORMONE LEVEL ABNORMAL
     Dosage: UNK UNK, QD
     Route: 048
     Dates: start: 20110315, end: 20110405
  12. ALLOPURINOL [Concomitant]
     Indication: MINERAL SUPPLEMENTATION
     Dosage: UNK UNK, QD
     Route: 048
     Dates: start: 20110315, end: 20110322
  13. ALLOPURINOL [Concomitant]
     Dosage: UNK
     Route: 048
     Dates: start: 20110414
  14. SODIUM BICARBONATE [Concomitant]
     Indication: PROPHYLAXIS
     Dosage: UNK UNK, PRN
     Route: 042
     Dates: start: 20110318
  15. SODIUM BICARBONATE [Concomitant]
     Dosage: UNK
     Route: 042
     Dates: start: 20110418, end: 20110425
  16. OLIVE OIL (+) SOYBEAN OIL [Concomitant]
     Indication: PROPHYLAXIS
     Dosage: UNK UNK, QD
     Route: 042
     Dates: start: 20110323, end: 20110409
  17. IMIPENEM [Concomitant]
     Indication: INFECTION PROPHYLAXIS
     Dosage: UNK UNK, QID
     Route: 042
     Dates: start: 20110323, end: 20110402
  18. TAZOBAC [Concomitant]
     Indication: PROPHYLAXIS
     Dosage: UNK UNK, TID
     Route: 042
     Dates: start: 20110313, end: 20110324
  19. TAZOBAC [Concomitant]
     Dosage: UNK
     Route: 042
     Dates: start: 20110414, end: 20110426
  20. CLINDAMYCIN PHOSPHATE [Concomitant]
     Indication: BACTERIAL INFECTION
     Dosage: UNK UNK, TID
     Route: 042
     Dates: start: 20110322, end: 20110324
  21. INSULIN HUMAN [Concomitant]
     Indication: DIABETES MELLITUS
     Dosage: UNK UNK, PRN
     Route: 042
     Dates: start: 20110316, end: 20110422
  22. FUROSEMIDE [Concomitant]
     Indication: EXTENSIVE INTERDIALYTIC WEIGHT GAIN
     Dosage: UNK UNK, PRN
     Route: 042
     Dates: start: 20110315, end: 20110408
  23. FUROSEMIDE [Concomitant]
     Dosage: UNK
     Route: 042
     Dates: start: 20110419, end: 20110421
  24. GRANISETRON [Concomitant]
     Indication: PROPHYLAXIS OF NAUSEA AND VOMITING
     Dosage: UNK UNK, QD
     Route: 042
     Dates: start: 20110319, end: 20110325
  25. GRANISETRON [Concomitant]
     Dosage: UNK
     Route: 042
     Dates: start: 20110330, end: 20110401
  26. GRANISETRON [Concomitant]
     Dosage: UNK, Q12H
     Route: 042
     Dates: start: 20110406, end: 20110407
  27. GRANISETRON [Concomitant]
     Dosage: UNK, ONCE
     Route: 042
     Dates: start: 20110411, end: 20110411
  28. GRANISETRON [Concomitant]
     Dosage: UNK, QD
     Route: 042
     Dates: start: 20110418, end: 20110425
  29. CYTARABINE [Concomitant]
     Indication: ACUTE MYELOID LEUKAEMIA
     Dosage: UNK UNK, QD
     Route: 048
     Dates: start: 20110319, end: 20110325
  30. CYTARABINE [Concomitant]
     Dosage: UNK
     Route: 042
     Dates: start: 20110418, end: 20110424
  31. IDARUBICIN HYDROCHLORIDE [Concomitant]
     Indication: ACUTE MYELOID LEUKAEMIA
     Dosage: UNK UNK, QOD
     Route: 042
     Dates: start: 20110319, end: 20110323
  32. IDARUBICIN HYDROCHLORIDE [Concomitant]
     Dosage: UNK, QD
     Route: 042
     Dates: start: 20110418, end: 20110420
  33. DEXPANTHENOL [Concomitant]
     Indication: PROPHYLAXIS
     Dosage: UNK UNK, Q4H
     Route: 048
     Dates: start: 20110315, end: 20110413
  34. DEXPANTHENOL [Concomitant]
     Dosage: UNK, PRN
     Route: 048
     Dates: start: 20110415
  35. K-DUR [Concomitant]
     Indication: PROPHYLAXIS
     Dosage: UNK UNK, PRN
     Route: 042
     Dates: start: 20110315, end: 20110411
  36. MORPHINE SULFATE [Concomitant]
     Indication: BACTERIAL INFECTION
     Dosage: UNK UNK, PRN
     Route: 042
     Dates: start: 20110316, end: 20110408
  37. MORPHINE SULFATE [Concomitant]
     Dosage: UNK
     Route: 042
     Dates: start: 20110315, end: 20110407
  38. HYDROXYUREA [Concomitant]
     Indication: ACUTE MYELOID LEUKAEMIA
     Dosage: UNK UNK, Q12H
     Route: 048
     Dates: start: 20110314, end: 20110318
  39. METOCLOPRAMIDE [Concomitant]
     Indication: NAUSEA
     Dosage: UNK UNK, ONCE
     Route: 048
     Dates: start: 20110316, end: 20110316
  40. METOCLOPRAMIDE [Concomitant]
     Dosage: UNK UNK, Q12H
     Dates: start: 20110325, end: 20110325
  41. METOCLOPRAMIDE [Concomitant]
     Dosage: UNK
     Route: 048
     Dates: start: 20110402, end: 20110402
  42. METOCLOPRAMIDE [Concomitant]
     Dosage: UNK, QD
     Route: 042
     Dates: start: 20110405, end: 20110405
  43. METOCLOPRAMIDE [Concomitant]
     Dosage: UNK, PRN
     Route: 042
     Dates: start: 20110406, end: 20110408
  44. METOCLOPRAMIDE [Concomitant]
     Dosage: UNK, QD
     Route: 048
     Dates: start: 20110408, end: 20110408
  45. METOCLOPRAMIDE [Concomitant]
     Dosage: UNK
     Route: 042
     Dates: start: 20110411, end: 20110411
  46. METOCLOPRAMIDE [Concomitant]
     Dosage: UNK
     Route: 048
     Dates: start: 20110409, end: 20110409
  47. METOCLOPRAMIDE [Concomitant]
     Dosage: UNK, TID
     Route: 048
     Dates: start: 20110414, end: 20110416
  48. ETOPOSIDE [Concomitant]
     Indication: ACUTE MYELOID LEUKAEMIA
     Dosage: UNK UNK, QD
     Route: 042
     Dates: start: 20110319, end: 20110321
  49. ETOPOSIDE [Concomitant]
     Dosage: UNK, QD
     Route: 042
     Dates: start: 20110418, end: 20110420
  50. GENTAMICIN SULFATE [Concomitant]
     Indication: STENOTROPHOMONAS INFECTION
     Dosage: UNK UNK, QD
     Route: 043
     Dates: start: 20110324, end: 20110410
  51. DIMENHYDRINATE [Concomitant]
     Indication: NAUSEA
     Dosage: UNK UNK, PRN
     Route: 042
     Dates: start: 20110321, end: 20110401
  52. DIMENHYDRINATE [Concomitant]
     Indication: VOMITING
     Dosage: UNK
     Route: 042
     Dates: start: 20110330, end: 20110401
  53. DIMENHYDRINATE [Concomitant]
     Dosage: UNK, TID
     Route: 042
     Dates: start: 20110401, end: 20110407
  54. DIMENHYDRINATE [Concomitant]
     Dosage: UNK, ONCE
     Route: 042
     Dates: start: 20110411, end: 20110411
  55. ACYCLOVIR [Concomitant]
     Indication: HERPES ZOSTER
     Dosage: FREQUENCY: THIRTEEN TIMES PER DAY
     Route: 042
     Dates: start: 20110324, end: 20110329
  56. LORAZEPAM [Concomitant]
     Indication: DEPRESSION
     Dosage: UNK UNK, ONCE
     Route: 048
     Dates: start: 20110324, end: 20110324
  57. LORAZEPAM [Concomitant]
     Dosage: UNK
     Route: 042
     Dates: start: 20110411, end: 20110411
  58. LORAZEPAM [Concomitant]
     Dosage: UNK, TID
     Route: 048
     Dates: start: 20110408, end: 20110408
  59. LORAZEPAM [Concomitant]
     Dosage: UNK, ONCE
     Route: 048
     Dates: start: 20110408, end: 20110408
  60. LORAZEPAM [Concomitant]
     Dosage: UNK, Q12H
     Route: 048
     Dates: start: 20110409, end: 20110409
  61. LORAZEPAM [Concomitant]
     Dosage: UNK, QD
     Route: 048
     Dates: start: 20110415, end: 20110422
  62. BEBETINA [Concomitant]
     Indication: PYREXIA
     Dosage: UNK UNK, ONCE
     Route: 042
     Dates: start: 20110324, end: 20110324
  63. BEBETINA [Concomitant]
     Dosage: UNK, QD
     Route: 042
     Dates: start: 20110330, end: 20110401
  64. HALOPERIDOL [Concomitant]
     Indication: MUSCLE RIGIDITY
     Dosage: UNK UNK, ONCE
     Route: 048
     Dates: start: 20110325, end: 20110325
  65. DIPYRONE [Concomitant]
     Indication: HERPES ZOSTER
     Dosage: UNK UNK, ONCE
     Route: 042
     Dates: start: 20110325, end: 20110325
  66. DIPYRONE [Concomitant]
     Indication: OROPHARYNGEAL PAIN
     Dosage: UNK
     Route: 048
     Dates: start: 20110329, end: 20110329
  67. DIPYRONE [Concomitant]
     Indication: ABDOMINAL PAIN
     Dosage: UNK, PRN
     Route: 042
     Dates: start: 20110411, end: 20110412
  68. DIPYRONE [Concomitant]
     Dosage: UNK, ONCE
     Route: 048
     Dates: start: 20110414, end: 20110414
  69. MOMETASONE FUROATE [Concomitant]
     Indication: ALLERGY PROPHYLAXIS
     Dosage: UNK UNK, TID
     Route: 045
     Dates: start: 20110325, end: 20110410
  70. BUSERELIN ACETATE [Concomitant]
     Indication: MENORRHAGIA
     Dosage: UNK UNK, TID
     Route: 045
     Dates: start: 20110315, end: 20110323
  71. BUSERELIN ACETATE [Concomitant]
     Indication: MENSTRUAL DISORDER
  72. BUSERELIN [Concomitant]
     Indication: MENORRHAGIA
     Dosage: UNK UNK, TID
     Route: 045
     Dates: start: 20110325, end: 20110404
  73. METFORMIN [Concomitant]
     Indication: DIABETES MELLITUS
     Dosage: UNK UNK, Q12H
     Route: 048
     Dates: start: 20110411, end: 20110418
  74. POSACONAZOLE [Concomitant]
     Indication: ANTIFUNGAL PROPHYLAXIS
     Dosage: FREQUENCY: TWICE (2X)
     Route: 048
     Dates: start: 20110330, end: 20110331
  75. ICELAND MOSS [Concomitant]
     Indication: OROPHARYNGEAL PAIN
     Dosage: UNK UNK, QD
     Route: 042
     Dates: start: 20110329, end: 20110329
  76. MAXIBOLIN [Concomitant]
     Indication: CONTRACEPTION
     Dosage: UNK UNK, QD
     Route: 048
     Dates: start: 20110406
  77. CEFTAZIDIME [Concomitant]
     Indication: STENOTROPHOMONAS INFECTION
     Dosage: UNK UNK, TID
     Route: 042
     Dates: start: 20110402, end: 20110412
  78. HYDROMORPHONE [Concomitant]
     Indication: ABDOMINAL PAIN
     Dosage: UNK UNK, PRN
     Route: 042
     Dates: start: 20110407, end: 20110410
  79. AMITRIPTYLIN [Concomitant]
     Indication: DEPRESSION
     Dosage: UNK UNK, QD
     Route: 048
     Dates: start: 20110408
  80. ALUMINUM HYDROXIDE (+) MAGNESIUM HYDROXIDE (+) OXETHAZAINE [Concomitant]
     Indication: DYSPEPSIA
     Dosage: UNK UNK, ONCE
     Route: 048
     Dates: start: 20110406, end: 20110406
  81. ALUMINUM HYDROXIDE (+) MAGNESIUM HYDROXIDE (+) OXETHAZAINE [Concomitant]
     Indication: ABDOMINAL PAIN UPPER
     Dosage: UNK, PRN
     Route: 048
     Dates: start: 20110402, end: 20110402
  82. DEXAMETASON [Concomitant]
     Indication: PROPHYLAXIS OF NAUSEA AND VOMITING
     Dosage: UNK UNK, Q12H
     Route: 048
     Dates: start: 20110408, end: 20110412
  83. TORSEMIDE [Concomitant]
     Indication: PROPHYLAXIS
     Dosage: UNK UNK, Q12H
     Route: 048
     Dates: start: 20110408, end: 20110410
  84. TORSEMIDE [Concomitant]
     Dosage: UNK, QD
     Route: 048
     Dates: start: 20110414
  85. SCOPOLAMINE HYDROBROMIDE [Concomitant]
     Indication: PROPHYLAXIS OF NAUSEA AND VOMITING
     Dosage: UNK UNK, ONCE
     Route: 062
     Dates: start: 20110410, end: 20110410
  86. BUTYLSCOPOLAMINE BROMIDE [Concomitant]
     Indication: ABDOMINAL RIGIDITY
     Dosage: UNK UNK, ONCE
     Route: 042
     Dates: start: 20110412, end: 20110412
  87. TILIDIN [Concomitant]
     Indication: ABDOMINAL PAIN
     Dosage: UNK UNK, ONCE
     Route: 048
     Dates: start: 20110412, end: 20110412
  88. MIDAZOLAM [Concomitant]
     Indication: SEDATIVE THERAPY
     Dosage: UNK UNK, ONCE
     Route: 042
     Dates: start: 20110413, end: 20110413
  89. TRETINOIN [Concomitant]
     Indication: ACUTE MYELOID LEUKAEMIA
     Dosage: UNK UNK, TID
     Route: 048
     Dates: start: 20110423, end: 20110425
  90. TRETINOIN [Concomitant]
     Dosage: UNK, Q12H
     Route: 048
     Dates: start: 20110426
  91. AMINO ACIDS (UNSPECIFIED) (+) CARBOHYDRATES (UNSPECIFIED) (+) ELECTROL [Concomitant]
     Indication: NUTRITIONAL SUPPLEMENTATION
     Dosage: UNK UNK, ONCE
     Route: 042
     Dates: start: 20110414, end: 20110414
  92. CHROMIC CHLORIDE (+) CUPRIC CHLORIDE (+) FERRIC CHLORIDE (+) MANGANESE [Concomitant]
     Indication: NUTRITIONAL SUPPLEMENTATION
     Dosage: UNK UNK, ONCE
     Route: 042
     Dates: start: 20110414, end: 20110414
  93. VITAMINS (UNSPECIFIED) [Concomitant]
     Indication: NUTRITIONAL SUPPLEMENTATION
     Dosage: UNK UNK, ONCE
     Route: 042
     Dates: start: 20110414, end: 20110414
  94. POTASSIUM (UNSPECIFIED) [Concomitant]
     Indication: PROPHYLAXIS
     Dosage: UNK UNK, PRN
     Route: 042
     Dates: start: 20110415
  95. DEXAMETHASONE [Concomitant]
     Indication: PROPHYLAXIS OF NAUSEA AND VOMITING
     Dosage: UNK UNK, Q12H
     Route: 048
     Dates: start: 20110418, end: 20110425
  96. NOXAFIL [Concomitant]
     Indication: INFECTION PROPHYLAXIS
     Dosage: UNK UNK, QD
     Route: 050
     Dates: start: 20110421
  97. DALTEPARIN SODIUM [Concomitant]
     Indication: THROMBOSIS PROPHYLAXIS
     Dosage: UNK UNK, QD
     Route: 058
     Dates: start: 20110414
  98. TYROTHRICIN [Concomitant]
     Indication: PUNCTURE SITE INFECTION
     Dosage: UNK UNK, PRN
     Route: 061
     Dates: start: 20110324, end: 20110324
  99. AMPHOTERICIN B [Concomitant]
     Indication: PROPHYLAXIS
     Dosage: UNK UNK, Q4H
     Route: 048
     Dates: start: 20110315, end: 20110323
  100. PREDNISOLONE SODIUM SUCCINATE [Concomitant]
     Indication: ALLERGIC TRANSFUSION REACTION
     Dosage: UNK UNK, ONCE
     Route: 042
     Dates: start: 20110322, end: 20110322
  101. PHYTONADIONE [Concomitant]
     Indication: SUPPORTIVE CARE
     Dosage: UNK UNK, QD
     Route: 042
     Dates: start: 20110414, end: 20110416

REACTIONS (2)
  - Nausea [Recovered/Resolved]
  - Vomiting [Recovered/Resolved]
